FAERS Safety Report 5080483-7 (Version None)
Quarter: 2006Q3

REPORT INFORMATION
  Report Type: 
  Country: None (occurrence: None)
  Receive Date: 20060809
  Receipt Date: 20060731
  Transmission Date: 20061208
  Serious: Yes (Life-Threatening, Hospitalization, Other)
  Sender: FDA-Public Use
  Company Number: 2006-07-1946

PATIENT
  Age: 58 Year
  Sex: Male

DRUGS (5)
  1. TEMODAL [Suspect]
     Indication: METASTASES TO CENTRAL NERVOUS SYSTEM
     Dosage: 130 MG ORAL
     Route: 048
     Dates: start: 20060531, end: 20060630
  2. RADIATION THERAPY NO DOSE FORM [Suspect]
     Indication: METASTASES TO CENTRAL NERVOUS SYSTEM
     Dosage: 30 GY (TOTAL) X-RAY THER
     Dates: start: 20060531, end: 20060614
  3. FORTECORTIN [Concomitant]
  4. HALDOL [Concomitant]
  5. CHEMOTHERAPY REGIMENS [Concomitant]

REACTIONS (5)
  - DYSGEUSIA [None]
  - NAUSEA [None]
  - PNEUMONIA [None]
  - THROMBOCYTOPENIA [None]
  - VOMITING [None]
